FAERS Safety Report 8819543 (Version 1)
Quarter: 2012Q4

REPORT INFORMATION
  Report Type: 
  Country: IE (occurrence: IE)
  Receive Date: 20120930
  Receipt Date: 20120930
  Transmission Date: 20130627
  Serious: Yes (Death, Hospitalization)
  Sender: FDA-Public Use
  Company Number: IE-ELI_LILLY_AND_COMPANY-IE201209004252

PATIENT
  Age: 50 Year
  Sex: Female

DRUGS (5)
  1. CYMBALTA [Suspect]
     Dosage: 60mg, daily
  2. OLANZAPINE [Concomitant]
     Dosage: 2.5mg, qam
  3. OLANZAPINE [Concomitant]
     Dosage: 7.5mg qpm
  4. ZOPICLONE [Concomitant]
     Dosage: 2.5mg qpm
  5. ALPRAZOLAM [Concomitant]
     Dosage: 250ug/bid

REACTIONS (3)
  - Completed suicide [Fatal]
  - Hospitalisation [Unknown]
  - Antidepressant drug level increased [Unknown]
